FAERS Safety Report 7990868-4 (Version None)
Quarter: 2011Q4

REPORT INFORMATION
  Report Type: 
  Country: None (occurrence: None)
  Receive Date: 20111219
  Receipt Date: 20111125
  Transmission Date: 20120403
  Serious: Yes (Hospitalization)
  Sender: FDA-Public Use
  Company Number: CH-ROCHE-1016606

PATIENT
  Sex: Female
  Weight: 90 kg

DRUGS (5)
  1. CYCLOPHOSPHAMIDE [Suspect]
     Indication: LYMPHOMA
     Route: 042
     Dates: start: 20111111
  2. MABTHERA [Suspect]
     Indication: LYMPHOMA
     Route: 042
     Dates: start: 20111111
  3. DOXORUBICIN HCL [Suspect]
     Indication: LYMPHOMA
     Route: 042
     Dates: start: 20111111
  4. PREDNISOLONE [Suspect]
     Indication: LYMPHOMA
     Route: 048
     Dates: start: 20111111
  5. VINCRISTINE [Suspect]
     Indication: LYMPHOMA
     Route: 042
     Dates: start: 20111111

REACTIONS (1)
  - CHOLECYSTITIS ACUTE [None]
